FAERS Safety Report 6419546-X (Version None)
Quarter: 2009Q4

REPORT INFORMATION
  Report Type: 
  Country: None (occurrence: None)
  Receive Date: 20091027
  Receipt Date: 20091012
  Transmission Date: 20100525
  Serious: Yes (Hospitalization)
  Sender: FDA-Public Use
  Company Number: 2009000927

PATIENT
  Age: 58 Year
  Sex: Male
  Weight: 67 kg

DRUGS (5)
  1. ERLOTINIB HYDROCHLORIDE [Suspect]
     Indication: NON-SMALL CELL LUNG CANCER
     Dosage: (150 MG, QD), ORAL
     Route: 048
     Dates: start: 20090219
  2. OXYCONTIN [Concomitant]
  3. LOXOPROFEN SODIUM (LOXOPROFEN SODIUM) [Concomitant]
  4. SELBEX (TEPRENONE) [Concomitant]
  5. METHYL COBALAMIN [Concomitant]

REACTIONS (1)
  - PNEUMOTHORAX [None]
